FAERS Safety Report 19996987 (Version 1)
Quarter: 2021Q4

REPORT INFORMATION
  Report Type: Spontaneous
  Country: GB (occurrence: GB)
  Receive Date: 20211026
  Receipt Date: 20211026
  Transmission Date: 20220303
  Serious: Yes (Other)
  Sender: FDA-Public Use
  Company Number: GB-GILEAD-2021-0552648

PATIENT

DRUGS (1)
  1. HARVONI [Suspect]
     Active Substance: LEDIPASVIR\SOFOSBUVIR
     Indication: Product used for unknown indication
     Route: 065

REACTIONS (3)
  - Congenital anomaly [Not Recovered/Not Resolved]
  - Developmental delay [Not Recovered/Not Resolved]
  - Visual impairment [Not Recovered/Not Resolved]
